FAERS Safety Report 13711421 (Version 1)
Quarter: 2017Q3

REPORT INFORMATION
  Report Type: Spontaneous
  Country: US (occurrence: US)
  Receive Date: 20170701
  Receipt Date: 20170701
  Transmission Date: 20171127
  Serious: No
  Sender: FDA-Public Use
  Company Number: None

PATIENT
  Age: 66 Year
  Sex: Female
  Weight: 56.25 kg

DRUGS (9)
  1. EVAMIST [Concomitant]
     Active Substance: ESTRADIOL
  2. CALCIUM [Concomitant]
     Active Substance: CALCIUM
  3. CRANBERRY EXTRACT [Concomitant]
     Active Substance: CRANBERRY JUICE
  4. VITAMIN D3 [Concomitant]
     Active Substance: CHOLECALCIFEROL
  5. YUVAFEM [Suspect]
     Active Substance: ESTRADIOL HEMIHYDRATE
     Indication: ATROPHIC VULVOVAGINITIS
     Dosage: OTHER STRENGTH:UGM/UGM;QUANTITY:1 TABLET(S);OTHER FREQUENCY:4 X PER WEEK;?
     Route: 067
     Dates: start: 20170501
  6. FISH OIL [Concomitant]
     Active Substance: FISH OIL
  7. MAGNESIUM [Concomitant]
     Active Substance: MAGNESIUM
  8. WELLBUTRIN XL [Concomitant]
     Active Substance: BUPROPION HYDROCHLORIDE
  9. CRESTOR [Concomitant]
     Active Substance: ROSUVASTATIN CALCIUM

REACTIONS (4)
  - Product substitution issue [None]
  - Drug ineffective [None]
  - Vulvovaginal dryness [None]
  - Vulvovaginal pain [None]

NARRATIVE: CASE EVENT DATE: 20170501
